FAERS Safety Report 8210888-4 (Version None)
Quarter: 2012Q1

REPORT INFORMATION
  Report Type: 
  Country: None (occurrence: None)
  Receive Date: 20120315
  Receipt Date: 20120307
  Transmission Date: 20120608
  Serious: Yes (Other)
  Sender: FDA-Public Use
  Company Number: US-BAYER-201033454NA

PATIENT
  Age: 31 Year
  Sex: Female
  Weight: 53 kg

DRUGS (9)
  1. YASMIN [Suspect]
     Indication: CONTRACEPTION
     Dosage: UNK
     Dates: start: 20040101, end: 20080101
  2. DROSPIRENONE AND ETHINYL ESTRADIOL [Suspect]
     Indication: CONTRACEPTION
     Dosage: UNK
     Dates: start: 20080101, end: 20090101
  3. YASMIN [Suspect]
     Indication: PRODUCT USED FOR UNKNOWN INDICATION
  4. YAZ [Suspect]
     Indication: PREMENSTRUAL SYNDROME
  5. YAZ [Suspect]
     Indication: CONTRACEPTION
  6. YAZ [Suspect]
     Indication: ENDOMETRIOSIS
  7. DROSPIRENONE AND ETHINYL ESTRADIOL [Suspect]
     Indication: ENDOMETRIOSIS
  8. DROSPIRENONE AND ETHINYL ESTRADIOL [Suspect]
     Indication: PREMENSTRUAL SYNDROME
  9. YASMIN [Suspect]
     Indication: PREMENSTRUAL SYNDROME

REACTIONS (10)
  - CHOLECYSTECTOMY [None]
  - DYSPEPSIA [None]
  - DIARRHOEA [None]
  - ANXIETY [None]
  - CHOLECYSTITIS CHRONIC [None]
  - SCAR [None]
  - ABDOMINAL DISTENSION [None]
  - FLATULENCE [None]
  - DEPRESSION [None]
  - CONSTIPATION [None]
